FAERS Safety Report 15601683 (Version 1)
Quarter: 2018Q4

REPORT INFORMATION
  Report Type: Spontaneous
  Country: US (occurrence: US)
  Receive Date: 20181109
  Receipt Date: 20181109
  Transmission Date: 20190205
  Serious: Yes (Other)
  Sender: FDA-Public Use
  Company Number: US-ELI_LILLY_AND_COMPANY-US201810015253

PATIENT
  Sex: Male

DRUGS (20)
  1. METHOTREXATE. [Suspect]
     Active Substance: METHOTREXATE
     Indication: PSORIATIC ARTHROPATHY
     Dosage: 2 ML, WEEKLY (1/W)
     Route: 058
     Dates: start: 2012
  2. METHOTREXATE. [Suspect]
     Active Substance: METHOTREXATE
     Dosage: 1 ML, WEEKLY (1/W)
     Route: 058
  3. SPIRONOLACTONE. [Concomitant]
     Active Substance: SPIRONOLACTONE
  4. METHOTREXATE. [Suspect]
     Active Substance: METHOTREXATE
     Dosage: 5 ML, WEEKLY (1/W)
     Route: 058
  5. ARAVA [Suspect]
     Active Substance: LEFLUNOMIDE
     Indication: PSORIATIC ARTHROPATHY
     Dosage: UNK, UNKNOWN
     Route: 065
  6. OTEZLA [Suspect]
     Active Substance: APREMILAST
     Indication: PSORIATIC ARTHROPATHY
     Dosage: UNK, UNKNOWN
     Route: 065
     Dates: start: 201412, end: 201501
  7. ENBREL [Suspect]
     Active Substance: ETANERCEPT
     Indication: PSORIATIC ARTHROPATHY
     Dosage: 50 MG, WEEKLY (1/W)
     Route: 058
  8. METHOTREXATE. [Suspect]
     Active Substance: METHOTREXATE
     Dosage: 0.2 OR 0.3 ML WEEKLY
     Route: 058
  9. MORPHINE [Concomitant]
     Active Substance: MORPHINE
  10. PLAQUENIL S [Concomitant]
     Active Substance: HYDROXYCHLOROQUINE SULFATE
     Dosage: UNK UNK, UNKNOWN
     Route: 065
     Dates: start: 201304, end: 201307
  11. VITAMIN B12 [Concomitant]
     Active Substance: CYANOCOBALAMIN
  12. ALEVE [Concomitant]
     Active Substance: NAPROXEN SODIUM
  13. TALTZ [Suspect]
     Active Substance: IXEKIZUMAB
     Indication: PSORIATIC ARTHROPATHY
     Dosage: UNK UNK, UNKNOWN
     Route: 065
  14. ENBREL [Suspect]
     Active Substance: ETANERCEPT
     Dosage: 25 MG, TWICE A WEEK
     Route: 058
  15. XELJANZ [Concomitant]
     Active Substance: TOFACITINIB CITRATE
  16. OXYCONTIN [Concomitant]
     Active Substance: OXYCODONE HYDROCHLORIDE
  17. OXYCODONE [Concomitant]
     Active Substance: OXYCODONE
  18. TYLENOL 8HR [Concomitant]
     Active Substance: ACETAMINOPHEN
  19. HUMIRA [Concomitant]
     Active Substance: ADALIMUMAB
     Dosage: UNK
     Dates: start: 201704, end: 201810
  20. PERCOCET [OXYCODONE HYDROCHLORIDE;OXYCODONE T [Concomitant]

REACTIONS (10)
  - Pyrexia [Unknown]
  - Nausea [Unknown]
  - Asthenia [Unknown]
  - Crohn^s disease [Unknown]
  - Drug intolerance [Unknown]
  - Retching [Unknown]
  - Malaise [Unknown]
  - Vomiting [Unknown]
  - Weight increased [Unknown]
  - Psychomotor hyperactivity [Unknown]
